FAERS Safety Report 21439958 (Version 1)
Quarter: 2022Q4

REPORT INFORMATION
  Report Type: Spontaneous
  Country: US (occurrence: US)
  Receive Date: 20221011
  Receipt Date: 20221011
  Transmission Date: 20230112
  Serious: No
  Sender: FDA-Public Use
  Company Number: CH-MORPHOSYS US-2022-MOR001951-CH

PATIENT
  Age: 72 Year
  Sex: Female

DRUGS (3)
  1. MONJUVI [Suspect]
     Active Substance: TAFASITAMAB-CXIX
     Indication: B-cell lymphoma
     Dosage: UNK PER L-MIN SCHEDULE
     Dates: start: 202012, end: 202110
  2. LENALIDOMIDE [Concomitant]
     Active Substance: LENALIDOMIDE
     Indication: B-cell lymphoma
     Dosage: 20 MILLIGRAM
     Dates: start: 202012, end: 202110
  3. BENDAMUSTINE;POLATUZUMAB VEDOTIN;RITUXIMAB [Concomitant]
     Indication: Lymphoma
     Dosage: UNK
     Dates: start: 202202

REACTIONS (5)
  - Fatigue [Unknown]
  - Cough [Unknown]
  - Therapy cessation [Unknown]
  - COVID-19 [Unknown]
  - Neutropenia [Unknown]

NARRATIVE: CASE EVENT DATE: 20201201
